FAERS Safety Report 4301241-4 (Version None)
Quarter: 2004Q1

REPORT INFORMATION
  Report Type: 
  Country: None (occurrence: None)
  Receive Date: 20040218
  Receipt Date: 20031022
  Transmission Date: 20041129
  Serious: No
  Sender: FDA-Public Use
  Company Number: 2003-10-2440

PATIENT

DRUGS (2)
  1. PEG-INTRON [Suspect]
     Route: 058
     Dates: start: 20030701
  2. REBETOL [Suspect]
     Route: 048
     Dates: start: 20030701

REACTIONS (2)
  - BURNING SENSATION [None]
  - RASH GENERALISED [None]
